FAERS Safety Report 5130905-8 (Version None)
Quarter: 2006Q4

REPORT INFORMATION
  Report Type: 
  Country: None (occurrence: None)
  Receive Date: 20061013
  Receipt Date: 20060929
  Transmission Date: 20070319
  Serious: Yes (Other)
  Sender: FDA-Public Use
  Company Number: 2005076144

PATIENT
  Age: 77 Year
  Sex: Female
  Weight: 97.0698 kg

DRUGS (4)
  1. CELEBREX [Suspect]
     Indication: ARTHRALGIA
     Dosage: 200 MG (200 MG, 1 IN 1 D), ORAL
     Route: 048
     Dates: start: 20050101, end: 20060101
  2. CELEBREX [Suspect]
     Indication: OSTEOPOROSIS
     Dosage: 200 MG (200 MG, 1 IN 1 D), ORAL
     Route: 048
     Dates: start: 20050101, end: 20060101
  3. LYRICA [Suspect]
     Indication: BURNING SENSATION
     Dosage: FREQUENCY: TID
  4. PLETAL (CILOSTAZOL) [Concomitant]

REACTIONS (8)
  - ARTHRALGIA [None]
  - BODY HEIGHT DECREASED [None]
  - BURNING SENSATION [None]
  - DIABETES MELLITUS [None]
  - DIABETIC NEUROPATHY [None]
  - KNEE ARTHROPLASTY [None]
  - OEDEMA PERIPHERAL [None]
  - THYROID DISORDER [None]
